FAERS Safety Report 15822355 (Version 2)
Quarter: 2019Q1

REPORT INFORMATION
  Report Type: Spontaneous
  Country: US (occurrence: US)
  Receive Date: 20190114
  Receipt Date: 20190318
  Transmission Date: 20190417
  Serious: No
  Sender: FDA-Public Use
  Company Number: US-PFIZER INC-2019015560

PATIENT
  Age: 34 Year
  Sex: Female
  Weight: 54.43 kg

DRUGS (3)
  1. OMEPRAZOLE. [Concomitant]
     Active Substance: OMEPRAZOLE
     Indication: GASTROOESOPHAGEAL REFLUX DISEASE
     Dosage: 10 MG, UNK
  2. FLUCONAZOLE. [Suspect]
     Active Substance: FLUCONAZOLE
     Dosage: 100 MG, 2X/DAY (100 MG TABLETS BY MOUTH TWICE A DAY FOR 14 DAYS)
     Route: 048
     Dates: end: 20190106
  3. FLUCONAZOLE. [Suspect]
     Active Substance: FLUCONAZOLE
     Indication: FUNGAL INFECTION
     Dosage: 400 MG (FIRST THE FIRST DAY)
     Route: 048

REACTIONS (1)
  - Alopecia [Not Recovered/Not Resolved]
